FAERS Safety Report 23064363 (Version 1)
Quarter: 2023Q4

REPORT INFORMATION
  Report Type: Report from Study
  Country: US (occurrence: US)
  Receive Date: 20231013
  Receipt Date: 20231013
  Transmission Date: 20240109
  Serious: Yes (Hospitalization, Other)
  Sender: FDA-Public Use
  Company Number: US-BIOVITRUM-2020-US-5216

PATIENT
  Age: 59 Year
  Sex: Female

DRUGS (10)
  1. KINERET [Suspect]
     Active Substance: ANAKINRA
     Indication: Pericarditis
     Dosage: EVERY OTHER DAY
     Route: 058
  2. KINERET [Suspect]
     Active Substance: ANAKINRA
     Indication: Systemic lupus erythematosus
     Dosage: DAILY
     Route: 058
     Dates: start: 20200228
  3. KINERET [Suspect]
     Active Substance: ANAKINRA
     Dosage: EVERY OTHER DAY
     Route: 058
     Dates: start: 20200228
  4. KINERET [Suspect]
     Active Substance: ANAKINRA
     Dosage: EVERY OTHER DAY
     Route: 058
     Dates: start: 20200202
  5. KINERET [Suspect]
     Active Substance: ANAKINRA
     Route: 058
     Dates: start: 201901
  6. ASPIRIN [Concomitant]
     Active Substance: ASPIRIN
     Indication: Product used for unknown indication
  7. LIPITOR [Concomitant]
     Active Substance: ATORVASTATIN CALCIUM
     Indication: Product used for unknown indication
  8. OMEPRAZOLE [Concomitant]
     Active Substance: OMEPRAZOLE
     Indication: Product used for unknown indication
  9. FOLIC ACID [Concomitant]
     Active Substance: FOLIC ACID
     Indication: Product used for unknown indication
  10. VITAMINS [Concomitant]
     Active Substance: VITAMINS
     Indication: Product used for unknown indication

REACTIONS (27)
  - Adrenal insufficiency [Recovering/Resolving]
  - Fall [Recovering/Resolving]
  - Rib fracture [Recovering/Resolving]
  - Blood glucose increased [Recovering/Resolving]
  - Lupus-like syndrome [Unknown]
  - Systemic lupus erythematosus [Unknown]
  - Pericarditis [Unknown]
  - Intentional product misuse [Unknown]
  - Blood parathyroid hormone increased [Recovering/Resolving]
  - Pruritus [Recovering/Resolving]
  - Injection site discolouration [Recovering/Resolving]
  - Injection site pain [Recovering/Resolving]
  - Blood potassium increased [Recovering/Resolving]
  - Product dose omission in error [Unknown]
  - Arthralgia [Recovering/Resolving]
  - Dermatitis contact [Recovering/Resolving]
  - Blood creatinine increased [Unknown]
  - Blood urea increased [Unknown]
  - Blood calcium decreased [Unknown]
  - COVID-19 [Unknown]
  - Injection site nodule [Unknown]
  - Joint swelling [Unknown]
  - Renal disorder [Unknown]
  - Condition aggravated [Unknown]
  - Arthritis [Unknown]
  - Renal failure [Unknown]
  - Osteoporosis [Unknown]

NARRATIVE: CASE EVENT DATE: 20200228
